FAERS Safety Report 8346064-4 (Version None)
Quarter: 2012Q2

REPORT INFORMATION
  Report Type: 
  Country: None (occurrence: None)
  Receive Date: 20120509
  Receipt Date: 20120504
  Transmission Date: 20120825
  Serious: No
  Sender: FDA-Public Use
  Company Number: US-PFIZER INC-2012110675

PATIENT
  Sex: Male
  Weight: 73.923 kg

DRUGS (3)
  1. CHANTIX [Suspect]
     Indication: SMOKING CESSATION THERAPY
     Dosage: 0.5 MG, UNK
     Route: 048
     Dates: start: 20110101, end: 20110101
  2. DILAUDID [Concomitant]
     Indication: SPINAL PAIN
     Dosage: 4 MG, 3X/DAY
  3. CHANTIX [Suspect]
     Dosage: 1 MG, UNK
     Route: 048
     Dates: start: 20110101, end: 20110101

REACTIONS (1)
  - NIGHTMARE [None]
